FAERS Safety Report 16747135 (Version 7)
Quarter: 2020Q3

REPORT INFORMATION
  Report Type: Spontaneous
  Country: US (occurrence: US)
  Receive Date: 20190827
  Receipt Date: 20200824
  Transmission Date: 20201102
  Serious: No
  Sender: FDA-Public Use
  Company Number: US-SA-2019SA237327

PATIENT

DRUGS (3)
  1. DUPIXENT [Suspect]
     Active Substance: DUPILUMAB
     Indication: DERMATITIS ATOPIC
     Dosage: 300 MG, QOW
     Route: 058
     Dates: start: 20190410
  2. LOSARTAN. [Concomitant]
     Active Substance: LOSARTAN
  3. METOPROLOL SUCCINATE. [Concomitant]
     Active Substance: METOPROLOL SUCCINATE

REACTIONS (9)
  - Eye discharge [Not Recovered/Not Resolved]
  - Insomnia [Unknown]
  - Drug ineffective [Unknown]
  - Lacrimation increased [Not Recovered/Not Resolved]
  - Vision blurred [Not Recovered/Not Resolved]
  - Dermatitis atopic [Unknown]
  - Eyelid margin crusting [Unknown]
  - Sleep disorder [Unknown]
  - Pain [Unknown]

NARRATIVE: CASE EVENT DATE: 201904
